FAERS Safety Report 9409425 (Version 2)
Quarter: 2013Q4

REPORT INFORMATION
  Report Type: Spontaneous
  Country: US (occurrence: US)
  Receive Date: 20130719
  Receipt Date: 20131018
  Transmission Date: 20140711
  Serious: Yes (Other)
  Sender: FDA-Public Use
  Company Number: US-SANOFI-AVENTIS-2013SA072016

PATIENT
  Age: 63 Year
  Sex: Female

DRUGS (5)
  1. AUBAGIO [Suspect]
     Indication: MULTIPLE SCLEROSIS
     Route: 048
     Dates: start: 20130421, end: 201307
  2. AMANTADINE [Concomitant]
  3. AMITRIPTYLINE [Concomitant]
  4. OXYBUTYNIN [Concomitant]
  5. FLEXERIL [Concomitant]

REACTIONS (1)
  - Stevens-Johnson syndrome [Recovered/Resolved]
